FAERS Safety Report 4362954-1 (Version None)
Quarter: 2004Q2

REPORT INFORMATION
  Report Type: 
  Country: None (occurrence: None)
  Receive Date: 20040517
  Receipt Date: 20040409
  Transmission Date: 20050107
  Serious: No
  Sender: FDA-Public Use
  Company Number: S04-USA-01904-01

PATIENT
  Age: 88 Year
  Sex: Male

DRUGS (6)
  1. NAMENDA [Suspect]
     Indication: DEMENTIA ALZHEIMER'S TYPE
     Dosage: 10 MG QD PO
     Route: 048
     Dates: start: 20040404
  2. NAMENDA [Suspect]
     Indication: DEMENTIA ALZHEIMER'S TYPE
     Dosage: 5 MG QD PO
     Route: 048
     Dates: start: 20040328, end: 20040403
  3. REMINYL [Concomitant]
  4. COUMADIN [Concomitant]
  5. COZAAR [Concomitant]
  6. DIGOXIN [Concomitant]

REACTIONS (1)
  - OEDEMA PERIPHERAL [None]
